FAERS Safety Report 19652358 (Version 1)
Quarter: 2021Q3

REPORT INFORMATION
  Report Type: Spontaneous
  Country: US (occurrence: US)
  Receive Date: 20210803
  Receipt Date: 20210803
  Transmission Date: 20211014
  Serious: Yes (Hospitalization)
  Sender: FDA-Public Use
  Company Number: US-ASTRAZENECA-2021A646761

PATIENT
  Sex: Male
  Weight: 106.6 kg

DRUGS (1)
  1. SYMBICORT [Suspect]
     Active Substance: BUDESONIDE\FORMOTEROL FUMARATE DIHYDRATE
     Indication: ASTHMA
     Dosage: 160/4.5, ONE PUFF TWICE DAILY
     Route: 055

REACTIONS (5)
  - Device delivery system issue [Unknown]
  - Illness [Recovered/Resolved]
  - Drug dose omission by device [Unknown]
  - COVID-19 [Recovered/Resolved]
  - Intentional device misuse [Unknown]
